FAERS Safety Report 9629274 (Version 1)
Quarter: 2013Q4

REPORT INFORMATION
  Report Type: Spontaneous
  Country: US (occurrence: US)
  Receive Date: 20131017
  Receipt Date: 20131017
  Transmission Date: 20140711
  Serious: No
  Sender: FDA-Public Use
  Company Number: US-ASTRAZENECA-2013SE67583

PATIENT
  Age: 66 Year
  Sex: Male
  Weight: 114.3 kg

DRUGS (8)
  1. CRESTOR [Suspect]
     Indication: BLOOD CHOLESTEROL
     Route: 048
     Dates: start: 2012
  2. CRESTOR [Suspect]
     Indication: BLOOD CHOLESTEROL
     Route: 048
     Dates: start: 201303
  3. GLUCOPHAGE [Concomitant]
     Indication: DIABETES MELLITUS
     Dates: start: 2008
  4. ZIAC [Concomitant]
     Indication: BLOOD PRESSURE ABNORMAL
     Dosage: 5/6.25 MG DAILY
     Dates: start: 1993
  5. LOPID [Concomitant]
     Indication: DIABETES MELLITUS
     Dates: start: 201307
  6. VICTOSA [Concomitant]
     Indication: DIABETES MELLITUS
     Dates: start: 201303
  7. ASPIRIN [Concomitant]
     Indication: CARDIAC DISORDER
  8. AMARYL [Concomitant]
     Indication: BLOOD GLUCOSE ABNORMAL

REACTIONS (2)
  - Blood glucose increased [Recovered/Resolved]
  - Off label use [Not Recovered/Not Resolved]
